FAERS Safety Report 22541211 (Version 1)
Quarter: 2023Q2

REPORT INFORMATION
  Report Type: Spontaneous
  Country: CA (occurrence: CA)
  Receive Date: 20230609
  Receipt Date: 20230609
  Transmission Date: 20230722
  Serious: Yes (Other)
  Sender: FDA-Public Use
  Company Number: CA-PFIZER INC-202300214069

PATIENT
  Sex: Male

DRUGS (2)
  1. PAXLOVID [Interacting]
     Active Substance: NIRMATRELVIR\RITONAVIR
     Indication: COVID-19 treatment
     Route: 065
  2. ALECTINIB [Interacting]
     Active Substance: ALECTINIB
     Route: 065

REACTIONS (7)
  - Drug interaction [Unknown]
  - Dysstasia [Unknown]
  - Neoplasm malignant [Unknown]
  - Swelling [Unknown]
  - Therapeutic product effect decreased [Unknown]
  - COVID-19 [Unknown]
  - Disease recurrence [Unknown]
